FAERS Safety Report 4947547-7 (Version None)
Quarter: 2006Q1

REPORT INFORMATION
  Report Type: 
  Country: None (occurrence: None)
  Receive Date: 20060314
  Receipt Date: 20060301
  Transmission Date: 20060701
  Serious: Yes (Life-Threatening, Hospitalization, Other)
  Sender: FDA-Public Use
  Company Number: 2006032818

PATIENT
  Age: 33 Year
  Sex: Female

DRUGS (6)
  1. PREDNISONE TAB [Suspect]
     Indication: URTICARIA
     Dosage: ORAL
     Route: 048
     Dates: start: 20060101, end: 20060101
  2. BENICAR HCT [Suspect]
     Indication: HYPERTENSION
     Dosage: 40/12.5 MG , ORAL
     Route: 048
     Dates: start: 20051101, end: 20060131
  3. AVAPRO [Suspect]
     Indication: HYPERTENSION
     Dosage: ORAL
     Route: 048
     Dates: start: 20060131, end: 20060201
  4. CATAPRES [Concomitant]
  5. TOPROL-XL [Concomitant]
  6. NORVASC [Concomitant]

REACTIONS (22)
  - ABDOMINAL PAIN [None]
  - ANGIONEUROTIC OEDEMA [None]
  - ASTHENIA [None]
  - CHILLS [None]
  - CHOLECYSTITIS [None]
  - DEHYDRATION [None]
  - DIZZINESS [None]
  - DRUG HYPERSENSITIVITY [None]
  - EXCORIATION [None]
  - HEPATITIS [None]
  - INFECTION [None]
  - LEUKOCYTOSIS [None]
  - LIVER DISORDER [None]
  - ORAL INTAKE REDUCED [None]
  - PYREXIA [None]
  - RASH GENERALISED [None]
  - RASH MACULAR [None]
  - RASH PRURITIC [None]
  - RENAL DISORDER [None]
  - RENAL FAILURE ACUTE [None]
  - THROMBOCYTOPENIA [None]
  - URTICARIA [None]
